FAERS Safety Report 6587875-5 (Version None)
Quarter: 2010Q1

REPORT INFORMATION
  Report Type: 
  Country: None (occurrence: None)
  Receive Date: 20100129
  Receipt Date: 20091203
  Transmission Date: 20100710
  Serious: No
  Sender: FDA-Public Use
  Company Number: 446231

PATIENT
  Age: 38 Year
  Sex: Female

DRUGS (5)
  1. OXALIPLATIN [Suspect]
     Indication: BILE DUCT CANCER
     Dosage: INTRAVENOUS (NOT OTHERWISE SPECIFIED)
     Route: 042
     Dates: start: 20091203, end: 20091203
  2. OXALIPLATIN [Suspect]
     Indication: BILE DUCT CANCER
     Dosage: INTRAVENOUS (NOT OTHERWISE SPECIFIED)
     Route: 042
     Dates: start: 20091203, end: 20091203
  3. GEMZAR [Concomitant]
  4. ZOFRAN [Concomitant]
  5. DEXAMETHASONE [Concomitant]

REACTIONS (1)
  - HYPERSENSITIVITY [None]
